FAERS Safety Report 9775572 (Version 1)
Quarter: 2013Q4

REPORT INFORMATION
  Report Type: Spontaneous
  Country: JP (occurrence: JP)
  Receive Date: 20131220
  Receipt Date: 20131220
  Transmission Date: 20140711
  Serious: Yes (Other)
  Sender: FDA-Public Use
  Company Number: JP-OTSUKA-02100-JPN-07-0752

PATIENT
  Age: 63 Year
  Sex: Male

DRUGS (1)
  1. PLETAAL [Suspect]
     Dosage: 100 MG, BID
     Route: 048
     Dates: start: 20071112, end: 20071114

REACTIONS (2)
  - Renal disorder [Recovered/Resolved]
  - Blood creatinine increased [Recovered/Resolved]
